FAERS Safety Report 11993581 (Version 10)
Quarter: 2020Q1

REPORT INFORMATION
  Report Type: Spontaneous
  Country: US (occurrence: US)
  Receive Date: 20160203
  Receipt Date: 20200318
  Transmission Date: 20200409
  Serious: No
  Sender: FDA-Public Use
  Company Number: US-PFIZER INC-2016013054

PATIENT
  Age: 90 Year
  Sex: Female
  Weight: 57.61 kg

DRUGS (2)
  1. LATANOPROST. [Suspect]
     Active Substance: LATANOPROST
     Dosage: UNK
  2. LATANOPROST. [Suspect]
     Active Substance: LATANOPROST
     Indication: INTRAOCULAR PRESSURE INCREASED
     Dosage: 1 DROP IN EACH EYE, ONCE A DAY
     Route: 047

REACTIONS (6)
  - Drug ineffective [Unknown]
  - Hypoacusis [Unknown]
  - Keratopathy [Unknown]
  - Eye irritation [Unknown]
  - Dry eye [Unknown]
  - Reaction to excipient [Unknown]
